FAERS Safety Report 4650806-9 (Version None)
Quarter: 2005Q2

REPORT INFORMATION
  Report Type: 
  Country: None (occurrence: None)
  Receive Date: 20050503
  Receipt Date: 20050428
  Transmission Date: 20051028
  Serious: Yes (Hospitalization)
  Sender: FDA-Public Use
  Company Number: JP-GLAXOSMITHKLINE-B0379466A

PATIENT
  Sex: Female

DRUGS (2)
  1. ZANTAC [Suspect]
     Indication: CHEMOTHERAPY
     Dosage: 50MG PER DAY
     Route: 042
     Dates: start: 20050420
  2. DECADRON [Concomitant]
     Dosage: 10MG PER DAY
     Route: 065

REACTIONS (1)
  - ANAPHYLACTIC SHOCK [None]
